FAERS Safety Report 5286269-2 (Version None)
Quarter: 2007Q1

REPORT INFORMATION
  Report Type: 
  Country: None (occurrence: None)
  Receive Date: 20070329
  Receipt Date: 20070320
  Transmission Date: 20070707
  Serious: Yes (Other)
  Sender: FDA-Public Use
  Company Number: 2007BI003234

PATIENT
  Age: 45 Year
  Sex: Male

DRUGS (2)
  1. NATALIZUMAB [Suspect]
     Indication: MULTIPLE SCLEROSIS
     Dosage: IV
     Route: 042
     Dates: start: 20050221, end: 20050221
  2. NATALIZUMAB [Suspect]
     Indication: MULTIPLE SCLEROSIS
     Dosage: 100 MG  QM IV
     Route: 042
     Dates: start: 20070109, end: 20070307

REACTIONS (6)
  - ANTIBODY TEST POSITIVE [None]
  - ARRHYTHMIA [None]
  - DRUG HYPERSENSITIVITY [None]
  - INFUSION RELATED REACTION [None]
  - KERATITIS [None]
  - SKIN REACTION [None]
